FAERS Safety Report 5551974-7 (Version None)
Quarter: 2007Q4

REPORT INFORMATION
  Report Type: 
  Country: None (occurrence: None)
  Receive Date: 20071129
  Receipt Date: 20070618
  Transmission Date: 20080405
  Serious: Yes (Other)
  Sender: FDA-Public Use
  Company Number: US200703002093

PATIENT
  Age: 37 Year
  Sex: Male
  Weight: 148.8 kg

DRUGS (2)
  1. ZYPREXA [Suspect]
     Indication: BIPOLAR I DISORDER
     Dosage: 20 MG
     Dates: start: 19970101, end: 20061116
  2. LITHIUM CARBONATE [Concomitant]

REACTIONS (6)
  - BLOOD GLUCOSE INCREASED [None]
  - CHEST PAIN [None]
  - DIABETES MELLITUS [None]
  - METABOLIC DISORDER [None]
  - NEUROPATHY PERIPHERAL [None]
  - OBESITY [None]
